FAERS Safety Report 7326970-X (Version None)
Quarter: 2011Q1

REPORT INFORMATION
  Report Type: 
  Country: None (occurrence: None)
  Receive Date: 20110302
  Receipt Date: 20100625
  Transmission Date: 20110831
  Serious: Yes (Hospitalization, Other)
  Sender: FDA-Public Use
  Company Number: US-PFIZER INC-2010034401

PATIENT
  Sex: Male

DRUGS (6)
  1. DILANTIN-125 [Suspect]
     Dosage: 100MG THREE ONCE A DAY
  2. DILANTIN-125 [Suspect]
     Indication: CONVULSION
     Dosage: 100MG ORALLY EVERY EIGHT HOURLY
     Route: 048
  3. DILANTIN [Suspect]
     Indication: CONVULSION
     Dosage: 50MG, DAILY
     Route: 048
  4. DILANTIN-125 [Suspect]
     Dosage: 350 MG, DAILY
  5. DILANTIN [Suspect]
     Dosage: 500 MG, UNK
     Route: 042
  6. DILANTIN-125 [Suspect]
     Dosage: 300MG ONCE DAILY
     Route: 048

REACTIONS (1)
  - STEVENS-JOHNSON SYNDROME [None]
